FAERS Safety Report 6863498-5 (Version None)
Quarter: 2010Q3

REPORT INFORMATION
  Report Type: 
  Country: None (occurrence: None)
  Receive Date: 20100721
  Receipt Date: 20100712
  Transmission Date: 20110219
  Serious: Yes (Other)
  Sender: FDA-Public Use
  Company Number: US-PFIZER INC-2010045112

PATIENT
  Sex: Female
  Weight: 90.703 kg

DRUGS (4)
  1. NICOTROL [Suspect]
     Indication: SMOKING CESSATION THERAPY
     Dosage: UNK
     Route: 045
     Dates: start: 20100301, end: 20100401
  2. ALBUTEROL [Concomitant]
     Indication: DYSPNOEA
     Dosage: 2 MG  TABLETS, 2X/DAY
  3. LEVOTHYROXINE [Concomitant]
     Indication: THYROID DISORDER
     Dosage: 125 UG, 1X/DAY
     Route: 048
  4. NORVASC [Concomitant]
     Indication: HYPERTENSION
     Dosage: 10 MG, 1X/DAY
     Route: 048

REACTIONS (16)
  - BURNING SENSATION MUCOSAL [None]
  - COUGH [None]
  - DEPRESSED MOOD [None]
  - DRY MOUTH [None]
  - FEELING ABNORMAL [None]
  - HAEMORRHAGE [None]
  - HEADACHE [None]
  - HYSTERECTOMY [None]
  - IMPAIRED HEALING [None]
  - NAUSEA [None]
  - SALIVARY DUCT OBSTRUCTION [None]
  - SALIVARY GLAND DISORDER [None]
  - SINUS DISORDER [None]
  - THROAT IRRITATION [None]
  - TRAUMATIC LUNG INJURY [None]
  - UMBILICAL HERNIA [None]
